FAERS Safety Report 5135088-6 (Version None)
Quarter: 2006Q4

REPORT INFORMATION
  Report Type: 
  Country: None (occurrence: None)
  Receive Date: 20060831
  Receipt Date: 20060517
  Transmission Date: 20070319
  Serious: No
  Sender: FDA-Public Use
  Company Number: 2006-BP-04533BP

PATIENT
  Age: 74 Year
  Sex: Female

DRUGS (23)
  1. SPIRIVA [Suspect]
     Indication: CHRONIC OBSTRUCTIVE PULMONARY DISEASE
     Dosage: 18 MCG (18 MCG,1 IN 1 D),IH
     Route: 055
     Dates: start: 20041122, end: 20041206
  2. TORSEMIDE (TORASEMDE) [Concomitant]
  3. ENALAPRIL MALEATE [Concomitant]
  4. DILTIAZEM [Concomitant]
  5. SALINE NASAL SPRAY [Concomitant]
  6. ALBUTEROL [Concomitant]
  7. ADVAIR DISKUS 100/50 [Concomitant]
  8. SPIRONOLACTONE [Concomitant]
  9. CELEBREX [Concomitant]
  10. ASPIRIN [Concomitant]
  11. MILK OF MAGNESIA TAB [Concomitant]
  12. ACETAMINOPHEN [Concomitant]
  13. CORICIDIN [Concomitant]
  14. MULTI-VITAMIN [Concomitant]
  15. B-50-SUPER B COMPLEX [Concomitant]
  16. CALCIUM [Concomitant]
  17. ASCORBIC ACID [Concomitant]
  18. IRON [Concomitant]
  19. NICOTINAMIDE [Concomitant]
  20. MANGANESE (MANGANESE) [Concomitant]
  21. ZINC [Concomitant]
  22. SELENIUM SULFIDE [Concomitant]
  23. VITAMIN E [Concomitant]

REACTIONS (6)
  - ADVERSE DRUG REACTION [None]
  - AGEUSIA [None]
  - COUGH [None]
  - DYSPHONIA [None]
  - DYSPNOEA [None]
  - FEELING COLD [None]
